FAERS Safety Report 7481982-0 (Version None)
Quarter: 2011Q2

REPORT INFORMATION
  Report Type: 
  Country: None (occurrence: None)
  Receive Date: 20110516
  Receipt Date: 20110505
  Transmission Date: 20111010
  Serious: Yes (Hospitalization)
  Sender: FDA-Public Use
  Company Number: BR-ASTRAZENECA-2011SE26990

PATIENT
  Sex: Male

DRUGS (7)
  1. SEROQUEL [Suspect]
     Route: 048
     Dates: start: 20110401
  2. SEROQUEL [Suspect]
     Route: 048
     Dates: start: 20110201
  3. PROLOPA [Concomitant]
     Indication: PARKINSON'S DISEASE
     Route: 048
  4. SEROQUEL [Suspect]
     Route: 048
     Dates: start: 20110101, end: 20110201
  5. SEROQUEL [Suspect]
     Indication: CONFUSIONAL STATE
     Route: 048
  6. PRAMIPEXOLE DIHYCHLLORIDE [Concomitant]
     Indication: PARKINSON'S DISEASE
     Route: 048
     Dates: start: 20110101
  7. PRAMIPEXOLE DIHYCHLLORIDE [Concomitant]
     Route: 048

REACTIONS (3)
  - CONFUSIONAL STATE [None]
  - OFF LABEL USE [None]
  - WRONG TECHNIQUE IN DRUG USAGE PROCESS [None]
